FAERS Safety Report 16340697 (Version 1)
Quarter: 2019Q2

REPORT INFORMATION
  Report Type: Spontaneous
  Country: JP (occurrence: JP)
  Receive Date: 20190522
  Receipt Date: 20190522
  Transmission Date: 20190711
  Serious: Yes (Other)
  Sender: FDA-Public Use
  Company Number: JP-SUN PHARMACEUTICAL INDUSTRIES LTD-2019RR-207711

PATIENT
  Age: 70 Year
  Sex: Male

DRUGS (12)
  1. VINORELBINE [Suspect]
     Active Substance: VINORELBINE\VINORELBINE TARTRATE
     Indication: GASTROINTESTINAL ADENOCARCINOMA
     Dosage: 7 COURSES
     Route: 065
  2. PREDNISOLONE. [Concomitant]
     Active Substance: PREDNISOLONE
     Indication: PRODUCT USED FOR UNKNOWN INDICATION
     Dosage: 40 MILLIGRAM, UNK
     Route: 048
  3. PEMETREXED. [Suspect]
     Active Substance: PEMETREXED
     Indication: GASTROINTESTINAL ADENOCARCINOMA
     Dosage: UNK
     Route: 065
  4. PREDNISOLONE. [Concomitant]
     Active Substance: PREDNISOLONE
     Dosage: GRADUALLY REDUCED
     Route: 048
  5. CARBOPLATIN. [Suspect]
     Active Substance: CARBOPLATIN
     Indication: GASTROINTESTINAL ADENOCARCINOMA
     Route: 065
  6. CISPLATIN. [Suspect]
     Active Substance: CISPLATIN
     Indication: GASTROINTESTINAL ADENOCARCINOMA
     Dosage: FOUR COURSES
     Route: 065
  7. DOCETAXEL. [Suspect]
     Active Substance: DOCETAXEL
     Indication: GASTROINTESTINAL ADENOCARCINOMA
     Dosage: 14 DOSES
     Route: 065
  8. BEVACIZUMAB. [Suspect]
     Active Substance: BEVACIZUMAB
     Indication: GASTROINTESTINAL ADENOCARCINOMA
     Dosage: UNK
     Route: 065
  9. NIVOLUMAB [Suspect]
     Active Substance: NIVOLUMAB
     Indication: DISEASE PROGRESSION
     Dosage: 220 MILLIGRAM
     Route: 065
  10. GEMCITABINE [Suspect]
     Active Substance: GEMCITABINE\GEMCITABINE HYDROCHLORIDE
     Indication: GASTROINTESTINAL ADENOCARCINOMA
     Dosage: FOUR COURSES
     Route: 065
  11. METHYLPREDNISOLONE. [Concomitant]
     Active Substance: METHYLPREDNISOLONE
     Indication: ENTERITIS
     Dosage: 40 MILLIGRAM, BID
     Route: 042
  12. PACLITAXEL. [Suspect]
     Active Substance: PACLITAXEL
     Indication: PRODUCT USED FOR UNKNOWN INDICATION
     Dosage: 4 COURSES
     Route: 065

REACTIONS (6)
  - Wheezing [Unknown]
  - Respiratory failure [Unknown]
  - Disease progression [Unknown]
  - Drug ineffective [Unknown]
  - Asthma [Unknown]
  - Hypothalamo-pituitary disorder [Recovering/Resolving]
